FAERS Safety Report 8113137-0 (Version None)
Quarter: 2012Q1

REPORT INFORMATION
  Report Type: 
  Country: None (occurrence: None)
  Receive Date: 20120131
  Receipt Date: 20120125
  Transmission Date: 20120608
  Serious: Yes (Other)
  Sender: FDA-Public Use
  Company Number: 1000027445

PATIENT
  Age: 44 Year
  Sex: Female

DRUGS (3)
  1. NEBIVOLOL HCL [Concomitant]
     Indication: HYPERTENSION
     Dosage: ORAL
     Route: 048
     Dates: start: 20120125
  2. NEBIVOLOL HCL [Suspect]
     Indication: HYPERTENSION
     Dosage: 5 MG ( 5 MG, 1 IN 1 D), ORAL
     Route: 048
     Dates: start: 20100101, end: 20120115
  3. OLSAR PLUS (OLMESARTAN MEDOXOMIL, HYDROCHLORIDE (OLMESARTAN MEDOXOMIL, [Concomitant]

REACTIONS (1)
  - TINNITUS [None]
